FAERS Safety Report 14405716 (Version 2)
Quarter: 2018Q2

REPORT INFORMATION
  Report Type: Spontaneous
  Country: RU (occurrence: RU)
  Receive Date: 20180118
  Receipt Date: 20180515
  Transmission Date: 20180711
  Serious: Yes (Hospitalization, Other)
  Sender: FDA-Public Use
  Company Number: RU-ASTRAZENECA-2017SF18855

PATIENT
  Age: 70 Year
  Sex: Male
  Weight: 100 kg

DRUGS (14)
  1. LIPRIMAR [Concomitant]
     Active Substance: ATORVASTATIN CALCIUM
  2. METFORMIN [Concomitant]
     Active Substance: METFORMIN HYDROCHLORIDE
  3. BRILINTA [Suspect]
     Active Substance: TICAGRELOR
     Indication: STENT PLACEMENT
     Route: 048
     Dates: start: 201706
  4. VEROSPIRON [Concomitant]
     Active Substance: SPIRONOLACTONE
  5. THROMBO ASS [Concomitant]
     Active Substance: ASPIRIN
  6. ZANIDIP [Concomitant]
     Active Substance: LERCANIDIPINE HYDROCHLORIDE
  7. INDAPAMIDE. [Concomitant]
     Active Substance: INDAPAMIDE
  8. BISOPROLOL [Concomitant]
     Active Substance: BISOPROLOL
  9. GLIMEPIRIDE. [Concomitant]
     Active Substance: GLIMEPIRIDE
  10. BRILINTA [Suspect]
     Active Substance: TICAGRELOR
     Indication: ANGINA UNSTABLE
     Route: 048
     Dates: start: 201706
  11. TRIGRIM [Concomitant]
  12. EDARBI [Concomitant]
     Active Substance: AZILSARTAN KAMEDOXOMIL
  13. MOXONIDINE [Concomitant]
     Active Substance: MOXONIDINE
  14. INSULIN [Concomitant]
     Active Substance: INSULIN NOS

REACTIONS (8)
  - Lower limb fracture [Not Recovered/Not Resolved]
  - Blood pressure fluctuation [Not Recovered/Not Resolved]
  - Pallor [Not Recovered/Not Resolved]
  - Epistaxis [Recovered/Resolved]
  - Fracture displacement [Unknown]
  - Sluggishness [Not Recovered/Not Resolved]
  - Contusion [Not Recovered/Not Resolved]
  - Asthenia [Not Recovered/Not Resolved]

NARRATIVE: CASE EVENT DATE: 201707
